FAERS Safety Report 20487034 (Version 2)
Quarter: 2022Q3

REPORT INFORMATION
  Report Type: Report from Study
  Country: DE (occurrence: DE)
  Receive Date: 20220217
  Receipt Date: 20220830
  Transmission Date: 20221026
  Serious: Yes (Hospitalization)
  Sender: FDA-Public Use
  Company Number: DE-NOVARTISPH-PHHY2018DE054196

PATIENT
  Age: 5 Year
  Sex: Female
  Weight: 25 kg

DRUGS (9)
  1. ILARIS [Suspect]
     Active Substance: CANAKINUMAB
     Indication: Muckle-Wells syndrome
     Dosage: UNK
     Route: 058
  2. ILARIS [Suspect]
     Active Substance: CANAKINUMAB
     Dosage: 120 MG
     Route: 058
     Dates: start: 20180202
  3. ILARIS [Suspect]
     Active Substance: CANAKINUMAB
     Dosage: 100 MG, UNK (PER APPLICATION)
     Route: 058
     Dates: start: 20180212
  4. ILARIS [Suspect]
     Active Substance: CANAKINUMAB
     Dosage: 100 MG, UNK (PER APPLICATION)
     Route: 058
     Dates: start: 20180313
  5. ILARIS [Suspect]
     Active Substance: CANAKINUMAB
     Dosage: 100 MG, UNK (PER APPLICATION)
     Route: 058
     Dates: start: 20180426
  6. ILARIS [Suspect]
     Active Substance: CANAKINUMAB
     Dosage: 120 MG
     Route: 058
  7. ILARIS [Suspect]
     Active Substance: CANAKINUMAB
     Dosage: 100 MG, UNK (PER APPLICATION)
     Route: 058
     Dates: start: 20180614, end: 20210125
  8. ILARIS [Suspect]
     Active Substance: CANAKINUMAB
     Dosage: 120 MG
     Route: 065
  9. CEFACLOR [Concomitant]
     Active Substance: CEFACLOR
     Indication: Impaired healing
     Dosage: 5 ML, TID
     Route: 048
     Dates: start: 20190506, end: 20190510

REACTIONS (2)
  - Streptococcal infection [Recovered/Resolved]
  - Platelet count increased [Unknown]

NARRATIVE: CASE EVENT DATE: 20180626
